FAERS Safety Report 18322342 (Version 10)
Quarter: 2021Q4

REPORT INFORMATION
  Report Type: Report from Study
  Country: GB (occurrence: GB)
  Receive Date: 20200928
  Receipt Date: 20211005
  Transmission Date: 20220303
  Serious: Yes (Hospitalization, Other)
  Sender: FDA-Public Use
  Company Number: GB-ROCHE-2225270

PATIENT
  Age: 43 Year
  Sex: Female

DRUGS (67)
  1. TRASTUZUMAB [Suspect]
     Active Substance: TRASTUZUMAB
     Indication: HER2 positive breast cancer
     Dosage: 8 MILLIGRAM, Q3W, ((PHARMACEUTICAL DOSE FORM: 293); PAIN FROM METASTASES
     Route: 042
     Dates: start: 20171108
  2. TRASTUZUMAB [Suspect]
     Active Substance: TRASTUZUMAB
     Indication: Breast cancer metastatic
     Dosage: UNK
  3. TRASTUZUMAB [Suspect]
     Active Substance: TRASTUZUMAB
     Dosage: UNK, PAIN FROM METASTASES
  4. TRASTUZUMAB [Suspect]
     Active Substance: TRASTUZUMAB
     Dosage: 8 MILLIGRAM, Q3W(8 MG, Q3W, INFUSION, SOLUTION, PAIN FROM METASTASES (DOSE FORM: 293))
     Route: 042
     Dates: start: 20171108
  5. DOCETAXEL [Suspect]
     Active Substance: DOCETAXEL
     Indication: HER2 positive breast cancer
     Dosage: 148 MILLIGRAM, Q3W(148 MG, Q3W)
     Route: 042
     Dates: start: 20171108, end: 20180131
  6. DOCETAXEL [Suspect]
     Active Substance: DOCETAXEL
     Indication: Breast cancer metastatic
     Dosage: 592 MILLIGRAM
     Route: 065
  7. DOCETAXEL [Suspect]
     Active Substance: DOCETAXEL
     Dosage: 592 MILLIGRAM; PAIN FROM METASTASES
  8. PERTUZUMAB [Suspect]
     Active Substance: PERTUZUMAB
     Indication: Breast cancer metastatic
     Dosage: 840 MILLIGRAM, Q3W(840 MG, Q3W)
     Route: 042
     Dates: start: 20181120
  9. PERTUZUMAB [Suspect]
     Active Substance: PERTUZUMAB
     Indication: HER2 positive breast cancer
     Dosage: UNK(PAIN FROM METASTASES)
  10. PERTUZUMAB [Suspect]
     Active Substance: PERTUZUMAB
     Indication: Cancer pain
     Dosage: UNK
  11. PERTUZUMAB [Suspect]
     Active Substance: PERTUZUMAB
     Dosage: 840 MILLIGRAM, Q3W(840 MILLIGRAM, Q3WK)
     Route: 065
     Dates: start: 20181120
  12. SIMVASTATIN [Concomitant]
     Active Substance: SIMVASTATIN
     Indication: Cancer pain
     Dosage: UNK
  13. SIMVASTATIN [Concomitant]
     Active Substance: SIMVASTATIN
     Dosage: 40 MILLIGRAM, QD(PAIN FROM METASTASES)
     Route: 048
  14. RAMIPRIL [Concomitant]
     Active Substance: RAMIPRIL
     Indication: Product used for unknown indication
     Dosage: UNK
  15. RAMIPRIL [Concomitant]
     Active Substance: RAMIPRIL
     Dosage: 1.25 MILLIGRAM, QD(PAIN FROM METASTASES)
     Route: 048
  16. ONDANSETRON [Concomitant]
     Active Substance: ONDANSETRON
     Indication: Diarrhoea
     Dosage: UNK
     Dates: start: 20181001, end: 201810
  17. ONDANSETRON [Concomitant]
     Active Substance: ONDANSETRON
     Dosage: 4 MILLIGRAM
     Dates: start: 20181002, end: 20181102
  18. ONDANSETRON [Concomitant]
     Active Substance: ONDANSETRON
     Dosage: 4 MILLIGRAM(PAIN FROM METASTASES)
     Dates: start: 20181002, end: 20181002
  19. METFORMIN [Concomitant]
     Active Substance: METFORMIN HYDROCHLORIDE
     Indication: Product used for unknown indication
     Dosage: 500 MILLIGRAM, QD (PAIN FROM METASTASES)
     Route: 048
  20. METFORMIN [Concomitant]
     Active Substance: METFORMIN HYDROCHLORIDE
     Dosage: 1000 MILLIGRAM, QD (PAIN FROM METASTASES)
     Route: 048
  21. METFORMIN [Concomitant]
     Active Substance: METFORMIN HYDROCHLORIDE
     Dosage: 500 MILLIGRAM, QD(500 MG, QD)
     Route: 048
  22. METFORMIN [Concomitant]
     Active Substance: METFORMIN HYDROCHLORIDE
     Dosage: 5 MILLIGRAM; PAIN FROM METASTASES
     Dates: start: 20181002, end: 20181002
  23. MIRTAZAPINE [Concomitant]
     Active Substance: MIRTAZAPINE
     Indication: Product used for unknown indication
     Dosage: 45 MILLIGRAM, QD(45 MG,QD PAIN FROM METASTASES)
     Route: 048
  24. LINEZOLID [Concomitant]
     Active Substance: LINEZOLID
     Indication: Device related infection
     Dosage: 600 MILLIGRAM, BID (0.5 DAY)
     Route: 048
     Dates: start: 20191125, end: 20191130
  25. LINEZOLID [Concomitant]
     Active Substance: LINEZOLID
     Dosage: UNK
  26. LINEZOLID [Concomitant]
     Active Substance: LINEZOLID
     Dosage: 600 MILLIGRAM; PAIN FROM METASTASES
     Route: 048
     Dates: start: 20191125, end: 20191130
  27. ALBUTEROL [Concomitant]
     Active Substance: ALBUTEROL
     Indication: Product used for unknown indication
     Dosage: 2 PUFF
     Route: 055
  28. ALBUTEROL [Concomitant]
     Active Substance: ALBUTEROL
     Dosage: 2 PUFF, PRN
     Route: 055
  29. ALBUTEROL [Concomitant]
     Active Substance: ALBUTEROL
     Dosage: 2 DOSE PUFF (PAIN FROM METASTASES)
     Route: 055
  30. SODIUM PICOSULFATE [Concomitant]
     Active Substance: SODIUM PICOSULFATE
     Indication: Constipation
     Dosage: 10 MILLIGRAM, QD (10 MILLIGRAM PER 10 MILLILITRE, QD, PAIN FROM METASTASES)
     Route: 048
  31. SODIUM PICOSULFATE [Concomitant]
     Active Substance: SODIUM PICOSULFATE
     Dosage: 10 MILLIGRAM (DOSE 10 OTHER (10 MG IN 10 ML), QD; PAIN FROM METASTASES)
     Route: 048
  32. SODIUM PICOSULFATE [Concomitant]
     Active Substance: SODIUM PICOSULFATE
     Dosage: UNK
  33. SODIUM PICOSULFATE [Concomitant]
     Active Substance: SODIUM PICOSULFATE
     Dosage: 10 MILLIGRAM, QD(10 MG, QD)
     Route: 048
  34. SODIUM PICOSULFATE [Concomitant]
     Active Substance: SODIUM PICOSULFATE
     Dosage: UNK DOSE 10 OTHER (10 MG IN 10 ML) PAIN FROM METASTASES)
     Route: 048
  35. QUETIAPINE [Concomitant]
     Active Substance: QUETIAPINE
     Indication: Depressed mood
     Dosage: 100 MILLIGRAM, QD(PAIN FROM METASTASES)
     Route: 048
     Dates: start: 2020
  36. QUETIAPINE [Concomitant]
     Active Substance: QUETIAPINE
     Indication: Depressed mood
     Dosage: 150 MILLIGRAM, QD(PAIN FROM METASTASES)
     Route: 048
     Dates: start: 2020
  37. QUETIAPINE [Concomitant]
     Active Substance: QUETIAPINE
     Dosage: UNK UNK, QD(PAIN FROM METASTASES)
     Route: 048
     Dates: start: 2020
  38. QUETIAPINE [Concomitant]
     Active Substance: QUETIAPINE
     Dosage: 100 MILLIGRAM, QD((DOSAGE FORM: 245); PAIN FROM METASTASES)
     Route: 048
     Dates: start: 2020
  39. OXYCODONE [Concomitant]
     Active Substance: OXYCODONE
     Indication: Cancer pain
     Dosage: 110 MILLIGRAM, BID (0.5 DAY)
     Route: 048
  40. OXYCODONE [Concomitant]
     Active Substance: OXYCODONE
     Dosage: 110 MILLIGRAM, BID (0.5 DAY)(110 MG, BID (0.5 DAY, PAIN FROM METASTASES; DOSAGE FORM: 245))
     Route: 048
  41. OXYCODONE [Concomitant]
     Active Substance: OXYCODONE
     Dosage: 220 MILLIGRAM, QD (220 MILLIGRAM, QD (PAIN FROM METASTASES; DOSAGE FORM: 245)
     Route: 048
  42. OXYCODONE [Concomitant]
     Active Substance: OXYCODONE
     Dosage: 110 MILLIGRAM, BID  110 MG, 0.5 DAY, PAIN FROM METASTASES
     Route: 048
  43. OXYCODONE [Concomitant]
     Active Substance: OXYCODONE
     Dosage: UNK(2 OT, QD )
  44. OXYCODONE [Concomitant]
     Active Substance: OXYCODONE
     Dosage: UNK(PUFF, BID)
  45. LACTULOSE [Concomitant]
     Active Substance: LACTULOSE
     Indication: Constipation
     Dosage: 10 MILLILITER, BID(10 ML, BID (0.5 DAY) PAIN FROM METASTASES)
     Route: 048
  46. LACTULOSE [Concomitant]
     Active Substance: LACTULOSE
     Indication: Prophylaxis
     Dosage: 20 MILLILITER, (10 ML, PER 0.5 DAY) 20 ML, 1/DAY (PROPHYLAXIS OF OPIOID INDUCED CONSTIPATION)
     Route: 048
  47. LACTULOSE [Concomitant]
     Active Substance: LACTULOSE
     Dosage: 10 MILLILITER, BID (0.5 DAY); PAIN FROM METASTASES
     Route: 048
  48. OMEPRAZOLE [Concomitant]
     Active Substance: OMEPRAZOLE
     Indication: Product used for unknown indication
     Dosage: 40 MILLIGRAM, QD (PAIN FROM METASTASES)
     Route: 048
     Dates: start: 201710
  49. BECLOMETHASONE DIPROPIONATE [Concomitant]
     Active Substance: BECLOMETHASONE DIPROPIONATE
     Indication: Cancer pain
     Dosage: 2 PUFF, BID (0.5 DAY)
     Route: 055
  50. BECLOMETHASONE DIPROPIONATE [Concomitant]
     Active Substance: BECLOMETHASONE DIPROPIONATE
     Dosage: UNK(2 OT, QD (DOSE 2 PUFF))
     Route: 055
  51. CALCIUM CARBONATE [Concomitant]
     Active Substance: CALCIUM CARBONATE
     Indication: Product used for unknown indication
     Dosage: 1 DOSAGE FORM, BID (1 DF,0.5)
     Route: 048
  52. CALCIUM CARBONATE [Concomitant]
     Active Substance: CALCIUM CARBONATE
     Dosage: 1 DOSAGE FORM, QD (PAIN FROM METASTASES)
     Route: 048
  53. CLONAZEPAM [Concomitant]
     Active Substance: CLONAZEPAM
     Indication: Muscle spasms
     Dosage: 250 MILLIGRAM, QD (PAIN FROM METASTASES)
     Route: 048
     Dates: start: 2020
  54. MORPHINE [Concomitant]
     Active Substance: MORPHINE
     Indication: Cancer pain
     Dosage: 5 MILLIGRAM
     Dates: start: 20181002, end: 20181002
  55. NITROFURANTOIN [Concomitant]
     Active Substance: NITROFURANTOIN
     Indication: Urinary tract infection
     Dosage: 50 MILLIGRAM, QID(50 MG,0.25)
     Route: 048
     Dates: start: 20181103, end: 20181109
  56. NITROFURANTOIN [Concomitant]
     Active Substance: NITROFURANTOIN
     Dosage: 200 MILLIGRAM, QD (200 MG, 1/DAY (DOSAGE FORM: 245) (PAIN FROM METASTASES
     Route: 048
     Dates: start: 20181103, end: 20181109
  57. CHOLECALCIFEROL [Concomitant]
     Active Substance: CHOLECALCIFEROL
     Indication: Cancer pain
     Dosage: 1 DOSAGE FORM, BID (1 DF,0.5)
     Route: 048
  58. CALCIUM\VITAMIN D [Concomitant]
     Active Substance: CALCIUM\VITAMIN D
     Dosage: 2 DOSAGE FORM (2 DF, 1/DAY (DOSAGE FORM: 245)
     Route: 048
  59. CALCIUM\VITAMIN D [Concomitant]
     Active Substance: CALCIUM\VITAMIN D
     Dosage: 1 DOSAGE FORM (F, PER 0.5 DAY)
     Route: 048
  60. BECLOMETHASONE DIPROPIONATE [Concomitant]
     Active Substance: BECLOMETHASONE DIPROPIONATE
     Indication: Cancer pain
     Dosage: DOSE 2 PUFF (0.5 DAY)PAIN FROM METASTASES
     Route: 055
  61. BECLOMETHASONE DIPROPIONATE [Concomitant]
     Active Substance: BECLOMETHASONE DIPROPIONATE
     Dosage: DOSE 2 PUFF; PAIN FROM METASTASES
     Route: 055
  62. BECLOMETHASONE DIPROPIONATE [Concomitant]
     Active Substance: BECLOMETHASONE DIPROPIONATE
     Dosage: 2 PUFF, BID; PAIN FROM METASTASES
     Route: 055
  63. BECLOMETHASONE DIPROPIONATE [Concomitant]
     Active Substance: BECLOMETHASONE DIPROPIONATE
     Dosage: 2 OT, QD (DOSE 2 PUFF)
     Route: 055
  64. BECLOMETHASONE DIPROPIONATE [Concomitant]
     Active Substance: BECLOMETHASONE DIPROPIONATE
     Dosage: 2 OT, QD (DOSE 2 PUFF)
     Route: 055
  65. BECLOMETHASONE DIPROPIONATE [Concomitant]
     Active Substance: BECLOMETHASONE DIPROPIONATE
     Dosage: 2 PUFF, BID PAIN FROM METASTASES
     Route: 055
  66. BECLOMETHASONE DIPROPIONATE [Concomitant]
     Active Substance: BECLOMETHASONE DIPROPIONATE
     Dosage: 2 OT, QD (DOSE 2 PUFF)
     Route: 055
  67. BECLOMETHASONE DIPROPIONATE [Concomitant]
     Active Substance: BECLOMETHASONE DIPROPIONATE
     Dosage: 2 PUFF, BID; PAIN FROM METASTASES
     Route: 055

REACTIONS (9)
  - Headache [Recovered/Resolved]
  - Diarrhoea [Recovered/Resolved]
  - Vomiting [Recovered/Resolved]
  - Muscle spasms [Recovered/Resolved]
  - Abdominal rigidity [Recovered/Resolved]
  - Off label use [Unknown]
  - Device related infection [Recovered/Resolved]
  - Dizziness [Recovered/Resolved]
  - Urinary tract infection [Recovered/Resolved]

NARRATIVE: CASE EVENT DATE: 20181001
